FAERS Safety Report 15265623 (Version 1)
Quarter: 2018Q3

REPORT INFORMATION
  Report Type: Spontaneous
  Country: US (occurrence: US)
  Receive Date: 20180810
  Receipt Date: 20180810
  Transmission Date: 20181010
  Serious: No
  Sender: FDA-Public Use
  Company Number: US-CELGENEUS-USA-20180803043

PATIENT
  Sex: Female

DRUGS (3)
  1. REVLIMID [Suspect]
     Active Substance: LENALIDOMIDE
     Indication: MYELODYSPLASTIC SYNDROME
     Dosage: 10 MILLIGRAM
     Route: 048
     Dates: start: 20180508
  2. REVLIMID [Suspect]
     Active Substance: LENALIDOMIDE
     Indication: COAGULOPATHY
  3. TOBRAMYCIN. [Suspect]
     Active Substance: TOBRAMYCIN
     Indication: EYE INFECTION
     Route: 047
     Dates: start: 2018

REACTIONS (2)
  - Feeling abnormal [Unknown]
  - Eye infection [Unknown]

NARRATIVE: CASE EVENT DATE: 2018
